FAERS Safety Report 24058621 (Version 1)
Quarter: 2024Q3

REPORT INFORMATION
  Report Type: Spontaneous
  Country: FR (occurrence: FR)
  Receive Date: 20240708
  Receipt Date: 20240708
  Transmission Date: 20241017
  Serious: Yes (Hospitalization)
  Sender: AUROBINDO
  Company Number: FR-AFSSAPS-CN2024000636

PATIENT
  Age: 68 Year
  Sex: Male
  Weight: 90.5 kg

DRUGS (9)
  1. PREGABALIN [Suspect]
     Active Substance: PREGABALIN
     Indication: Neuralgia
     Dosage: 150 MILLIGRAM, TWO TIMES A DAY (150 MG 1-0-1)
     Route: 048
     Dates: start: 202304
  2. ALFUZOSIN HYDROCHLORIDE [Suspect]
     Active Substance: ALFUZOSIN HYDROCHLORIDE
     Indication: Benign prostatic hyperplasia
     Dosage: 10 MILLIGRAM, ONCE A DAY (10 MG LP EVERY EVENING)
     Route: 048
     Dates: start: 20230405
  3. ATORVASTATIN [Suspect]
     Active Substance: ATORVASTATIN
     Indication: Acute coronary syndrome
     Dosage: 80 MILLIGRAM, ONCE A DAY (80 MG/DAY)
     Route: 048
     Dates: start: 202306
  4. BISOPROLOL [Suspect]
     Active Substance: BISOPROLOL\BISOPROLOL FUMARATE
     Indication: Acute coronary syndrome
     Dosage: 1.25 MILLIGRAM, ONCE A DAY (1.25 MG/DAY)
     Route: 048
     Dates: start: 202306
  5. EZETIMIBE [Suspect]
     Active Substance: EZETIMIBE
     Indication: Acute coronary syndrome
     Dosage: 10 MILLIGRAM, ONCE A DAY (10 MG/DAY)
     Route: 048
     Dates: start: 202306
  6. RAMIPRIL [Suspect]
     Active Substance: RAMIPRIL
     Indication: Acute coronary syndrome
     Dosage: 2.5 MILLIGRAM, ONCE A DAY (2.5 MG/DAY)
     Route: 048
     Dates: start: 202306
  7. ELIQUIS [Suspect]
     Active Substance: APIXABAN
     Indication: Portal vein thrombosis
     Dosage: 5 MILLIGRAM, TWO TIMES A DAY (5 MG 1-0-1)
     Route: 048
     Dates: start: 202303
  8. JARDIANCE [Suspect]
     Active Substance: EMPAGLIFLOZIN
     Indication: Acute coronary syndrome
     Dosage: 10 MILLIGRAM, ONCE A DAY (10 MG/DAY)
     Route: 048
     Dates: start: 202306
  9. KARDEGIC [Suspect]
     Active Substance: ASPIRIN DL-LYSINE
     Indication: Acute coronary syndrome
     Dosage: 75 MILLIGRAM, ONCE A DAY (75 MG/DAY)
     Route: 048
     Dates: start: 202306

REACTIONS (1)
  - Lichenoid keratosis [Not Recovered/Not Resolved]

NARRATIVE: CASE EVENT DATE: 20240416
